FAERS Safety Report 21590795 (Version 1)
Quarter: 2022Q4

REPORT INFORMATION
  Report Type: Spontaneous
  Country: US (occurrence: None)
  Receive Date: 20221111
  Receipt Date: 20221111
  Transmission Date: 20230112
  Serious: Yes (Other)
  Sender: FDA-Public Use
  Company Number: None

PATIENT
  Age: 9 Year
  Sex: Male
  Weight: 30.15 kg

DRUGS (1)
  1. POLYETHYLENE GLYCOL [Suspect]
     Active Substance: POLYETHYLENE GLYCOL
     Indication: Constipation
     Dosage: OTHER QUANTITY : 5 CAPFUL;?OTHER FREQUENCY : 5 CAPFULS;?
     Route: 048
     Dates: start: 20221104, end: 20221108

REACTIONS (3)
  - Depressed mood [None]
  - Mood altered [None]
  - Agoraphobia [None]

NARRATIVE: CASE EVENT DATE: 20221105
